FAERS Safety Report 5829354-6 (Version None)
Quarter: 2008Q2

REPORT INFORMATION
  Report Type: 
  Country: None (occurrence: None)
  Receive Date: 20080601
  Receipt Date: 20080225
  Transmission Date: 20081010
  Serious: No
  Sender: FDA-Public Use
  Company Number: US200802004014

PATIENT
  Age: 51 Year
  Sex: Female

DRUGS (3)
  1. BYETTA [Suspect]
     Dosage: 5 UG, SUBCUTANEOUS; 10 UG, SUBCUTANEOUS
     Route: 058
     Dates: start: 20080101
  2. BYETTA [Suspect]
     Dosage: 5 UG, SUBCUTANEOUS; 10 UG, SUBCUTANEOUS
     Route: 058
     Dates: start: 20080101
  3. EXENATIDE 5MCG PEN, DISPOSABLE DEVICE (EXENATIDE PEN (5MCG)) PEN,DISPO [Concomitant]

REACTIONS (3)
  - BLOOD GLUCOSE INCREASED [None]
  - VOMITING [None]
  - WEIGHT DECREASED [None]
